FAERS Safety Report 17354235 (Version 1)
Quarter: 2020Q1

REPORT INFORMATION
  Report Type: Spontaneous
  Country: BR (occurrence: BR)
  Receive Date: 20200131
  Receipt Date: 20200131
  Transmission Date: 20200409
  Serious: Yes (Other)
  Sender: FDA-Public Use
  Company Number: BR-SA-2020SA019800

PATIENT
  Age: 63 Year
  Sex: Female
  Weight: 60 kg

DRUGS (6)
  1. SULFUR. [Concomitant]
     Active Substance: SULFUR
     Dosage: 3 BLOOD CELLS PER DAY
     Route: 048
  2. SILICEA [SILICON DIOXIDE] [Concomitant]
     Indication: HYPERSENSITIVITY
     Dosage: 3 BLOOD CELLS PER DAY
     Route: 048
  3. RANITIDINE HYDROCHLORIDE. [Suspect]
     Active Substance: RANITIDINE HYDROCHLORIDE
     Indication: REFLUX GASTRITIS
  4. PYRIDIUM [Concomitant]
     Active Substance: PHENAZOPYRIDINE
     Indication: DIZZINESS
     Dosage: 3 BLOOD CELLS PER DAY
     Route: 048
  5. HYDRASTIS [Concomitant]
     Active Substance: HERBALS\HOMEOPATHICS\GOLDENSEAL
     Indication: HYPERSENSITIVITY
     Dosage: 3 BLOOD CELLS PER DAY
     Route: 048
  6. RANITIDINE HYDROCHLORIDE. [Suspect]
     Active Substance: RANITIDINE HYDROCHLORIDE
     Indication: DYSPEPSIA
     Dosage: 1 DF, QD
     Route: 048

REACTIONS (6)
  - Choking [Recovered/Resolved]
  - Asphyxia [Unknown]
  - Vomiting [Recovered/Resolved]
  - Malaise [Recovered/Resolved]
  - Dyspepsia [Unknown]
  - Product dose omission [Unknown]

NARRATIVE: CASE EVENT DATE: 20200120
